FAERS Safety Report 7014425-1 (Version None)
Quarter: 2010Q3

REPORT INFORMATION
  Report Type: 
  Country: None (occurrence: None)
  Receive Date: 20100927
  Receipt Date: 20100826
  Transmission Date: 20110219
  Serious: No
  Sender: FDA-Public Use
  Company Number: US-MYLANLABS-2010S1015878

PATIENT
  Sex: Male

DRUGS (1)
  1. CARVEDILOL [Suspect]
     Route: 048
     Dates: start: 20090101

REACTIONS (1)
  - SOMNOLENCE [None]
